FAERS Safety Report 11886394 (Version 2)
Quarter: 2016Q2

REPORT INFORMATION
  Report Type: Report from Study
  Country: DE (occurrence: DE)
  Receive Date: 20160104
  Receipt Date: 20160608
  Transmission Date: 20160815
  Serious: Yes (Hospitalization)
  Sender: FDA-Public Use
  Company Number: DE-BIOGEN-2015BI147663

PATIENT
  Age: 34 Year
  Sex: Male

DRUGS (6)
  1. TECFIDERA [Suspect]
     Active Substance: DIMETHYL FUMARATE
     Route: 065
     Dates: start: 20160223
  2. METAMIZOLE [Concomitant]
     Active Substance: METAMIZOLE
     Indication: PRODUCT USED FOR UNKNOWN INDICATION
     Route: 065
  3. IBUPROFEN. [Concomitant]
     Active Substance: IBUPROFEN
     Indication: PRODUCT USED FOR UNKNOWN INDICATION
     Route: 065
  4. PANTAZOLE [Concomitant]
     Indication: PRODUCT USED FOR UNKNOWN INDICATION
     Route: 065
  5. TECFIDERA [Suspect]
     Active Substance: DIMETHYL FUMARATE
     Indication: MULTIPLE SCLEROSIS
     Route: 048
     Dates: start: 20140627
  6. TECFIDERA [Suspect]
     Active Substance: DIMETHYL FUMARATE
     Route: 048
     Dates: end: 20151115

REACTIONS (9)
  - Accident at work [Recovered/Resolved]
  - Burning sensation [Recovered/Resolved]
  - Wrist fracture [Unknown]
  - Hypoaesthesia oral [Recovered/Resolved]
  - Ligament rupture [Recovered/Resolved with Sequelae]
  - Hypoaesthesia [Unknown]
  - Haemorrhage [Unknown]
  - Joint injury [Recovered/Resolved with Sequelae]
  - Arthralgia [Unknown]

NARRATIVE: CASE EVENT DATE: 201505
